FAERS Safety Report 6790537-2 (Version None)
Quarter: 2010Q2

REPORT INFORMATION
  Report Type: 
  Country: None (occurrence: None)
  Receive Date: 20100624
  Receipt Date: 20100614
  Transmission Date: 20101027
  Serious: Yes (Other)
  Sender: FDA-Public Use
  Company Number: JP-ROCHE-710611

PATIENT
  Age: 50 Year
  Sex: Male

DRUGS (2)
  1. XELODA [Suspect]
     Indication: COLON CANCER
     Route: 048
     Dates: start: 20100323, end: 20100612
  2. ELPLAT [Suspect]
     Indication: COLON CANCER
     Route: 041
     Dates: start: 20100323, end: 20100612

REACTIONS (1)
  - HYPERAMMONAEMIA [None]
